FAERS Safety Report 16465452 (Version 1)
Quarter: 2019Q2

REPORT INFORMATION
  Report Type: Spontaneous
  Country: FR (occurrence: FR)
  Receive Date: 20190621
  Receipt Date: 20190621
  Transmission Date: 20190711
  Serious: Yes (Death, Life-Threatening, Disabling, Other)
  Sender: FDA-Public Use
  Company Number: FR-MYLANLABS-2019M1057841

PATIENT
  Sex: Female

DRUGS (5)
  1. LEELOO [Concomitant]
     Active Substance: ETHINYL ESTRADIOL\LEVONORGESTREL
     Dosage: 0.1 MG/0.02 MG,
     Route: 048
     Dates: start: 2014
  2. OMEPRAZOLE. [Suspect]
     Active Substance: OMEPRAZOLE
     Indication: DYSPEPSIA
     Dosage: 1 DOSAGE FORM, QD (1 DF,QD)
     Route: 048
     Dates: start: 20160728
  3. FLAGYL [Suspect]
     Active Substance: METRONIDAZOLE\METRONIDAZOLE HYDROCHLORIDE
     Indication: GINGIVITIS ULCERATIVE
     Dosage: 1 GRAM, QD
     Route: 048
     Dates: start: 20160721, end: 2016
  4. PARACETAMOL [Concomitant]
     Active Substance: ACETAMINOPHEN
     Dosage: UNK
     Dates: start: 20160721
  5. PAROEX [Concomitant]
     Active Substance: CHLORHEXIDINE GLUCONATE
     Dosage: UNK
     Dates: start: 20160721

REACTIONS (13)
  - Decreased appetite [Recovered/Resolved]
  - Neuralgia [Recovered/Resolved with Sequelae]
  - Paraplegia [Recovered/Resolved with Sequelae]
  - Vertigo [Unknown]
  - Confusional state [Unknown]
  - Micturition disorder [Recovered/Resolved with Sequelae]
  - Suicide attempt [Recovered/Resolved with Sequelae]
  - Anorectal disorder [Recovered/Resolved with Sequelae]
  - Obsessive thoughts [Unknown]
  - Completed suicide [Fatal]
  - Feeling abnormal [Unknown]
  - Dyspepsia [Unknown]
  - Insomnia [Recovered/Resolved]

NARRATIVE: CASE EVENT DATE: 201607
